FAERS Safety Report 25088915 (Version 1)
Quarter: 2025Q1

REPORT INFORMATION
  Report Type: Spontaneous
  Country: SG (occurrence: SG)
  Receive Date: 20250318
  Receipt Date: 20250318
  Transmission Date: 20250408
  Serious: Yes (Hospitalization, Other)
  Sender: ELITE
  Company Number: SG-ELITEPHARMA-2025ELLIT00051

PATIENT
  Age: 70 Year
  Sex: Female

DRUGS (2)
  1. METHOTREXATE [Suspect]
     Active Substance: METHOTREXATE
     Indication: Psoriasis
     Dosage: 7.5MG ONCE PER WEEK FOR 2 WEEKS
     Route: 065
  2. HERBALS\HOMEOPATHICS [Suspect]
     Active Substance: HERBALS\HOMEOPATHICS
     Indication: Psoriasis
     Route: 065

REACTIONS (5)
  - Ulcer haemorrhage [Recovered/Resolved]
  - Pancytopenia [Recovered/Resolved]
  - Acute kidney injury [Recovered/Resolved]
  - Mouth ulceration [Recovered/Resolved]
  - Psoriasis [Recovered/Resolved]
